FAERS Safety Report 6253615-2 (Version None)
Quarter: 2009Q3

REPORT INFORMATION
  Report Type: 
  Country: None (occurrence: None)
  Receive Date: 20090701
  Receipt Date: 20090512
  Transmission Date: 20100115
  Serious: Yes (Hospitalization)
  Sender: FDA-Public Use
  Company Number: DE-PFIZER INC-2009232757

PATIENT

DRUGS (5)
  1. ATARAX [Suspect]
     Dosage: 140 MG, SINGLE
     Route: 048
  2. LORAZEPAM [Suspect]
     Dosage: 10 MG, ONCE
     Route: 048
  3. MIANSERIN [Suspect]
     Dosage: 200 MG, SINGLE
     Route: 048
  4. SEROQUEL [Suspect]
     Dosage: 1200 MG, SINGLE
     Route: 048
  5. ZOLPIDEM [Suspect]
     Dosage: 60 MG, SINGLE
     Route: 048

REACTIONS (3)
  - MYDRIASIS [None]
  - SOMNOLENCE [None]
  - SUICIDE ATTEMPT [None]
